FAERS Safety Report 24084109 (Version 5)
Quarter: 2024Q3

REPORT INFORMATION
  Report Type: Spontaneous
  Country: GB (occurrence: GB)
  Receive Date: 20240712
  Receipt Date: 20240910
  Transmission Date: 20241017
  Serious: Yes (Hospitalization, Other)
  Sender: MYLAN
  Company Number: GB-MYLANLABS-2024M1062906

PATIENT
  Sex: Male

DRUGS (3)
  1. CLOZARIL [Suspect]
     Active Substance: CLOZAPINE
     Indication: Schizophrenia
     Dosage: UNK
     Route: 048
     Dates: start: 20230223, end: 20240701
  2. CLOZARIL [Suspect]
     Active Substance: CLOZAPINE
     Dosage: UNK
     Route: 048
     Dates: start: 20240715
  3. CLOZARIL [Suspect]
     Active Substance: CLOZAPINE
     Dosage: 445 MILLIGRAM, QD (DAILY, USUAL DOSAGE 200MG MANE AND 245 NOCTE)
     Route: 048

REACTIONS (6)
  - Intestinal pseudo-obstruction [Unknown]
  - Schizophrenia [Recovering/Resolving]
  - Faecaloma [Unknown]
  - Leukopenia [Recovered/Resolved]
  - Eosinophil count decreased [Not Recovered/Not Resolved]
  - Platelet count decreased [Not Recovered/Not Resolved]

NARRATIVE: CASE EVENT DATE: 20240802
